FAERS Safety Report 4992436-5 (Version None)
Quarter: 2006Q2

REPORT INFORMATION
  Report Type: 
  Country: None (occurrence: None)
  Receive Date: 20060504
  Receipt Date: 20060315
  Transmission Date: 20061013
  Serious: Yes (Other)
  Sender: FDA-Public Use
  Company Number: IT-AMGEN-UK172656

PATIENT
  Sex: Female
  Weight: 61 kg

DRUGS (3)
  1. PALIFERMIN [Suspect]
     Indication: PERIPHERAL BLOOD STEM CELL APHERESIS
     Route: 042
     Dates: start: 20060218, end: 20060222
  2. MEPRAL [Concomitant]
     Route: 048
     Dates: start: 20060222
  3. ACYCLOVIR [Concomitant]
     Route: 042
     Dates: start: 20060223, end: 20060303

REACTIONS (3)
  - GINGIVAL DISORDER [None]
  - HYPERCHROMASIA [None]
  - TONGUE DISORDER [None]
